FAERS Safety Report 10276412 (Version 2)
Quarter: 2014Q3

REPORT INFORMATION
  Report Type: Spontaneous
  Country: US (occurrence: US)
  Receive Date: 20140703
  Receipt Date: 20140718
  Transmission Date: 20150326
  Serious: No
  Sender: FDA-Public Use
  Company Number: US-BAYER-2014-099027

PATIENT
  Age: 71 Year
  Sex: Female
  Weight: 54.42 kg

DRUGS (10)
  1. FISH OIL [Concomitant]
     Active Substance: FISH OIL
     Dosage: UNK
     Dates: start: 1999
  2. OMEPRAZOLE. [Concomitant]
     Active Substance: OMEPRAZOLE
     Indication: GASTROOESOPHAGEAL REFLUX DISEASE
     Dosage: UNK
  3. MAGNESIUM [Concomitant]
     Active Substance: MAGNESIUM
     Dosage: UNK
     Dates: start: 1999
  4. GARLIC. [Concomitant]
     Active Substance: GARLIC
     Dosage: UNK
     Dates: start: 1999
  5. VITAMIIN C [Concomitant]
     Dosage: UNK
     Dates: start: 1999
  6. BILBERRY [Concomitant]
     Active Substance: BILBERRY
     Dosage: UNK
     Dates: start: 1999
  7. NIACIN. [Concomitant]
     Active Substance: NIACIN
     Dosage: UNK
     Dates: start: 1999
  8. VITAMIN D3 [Concomitant]
     Active Substance: CHOLECALCIFEROL
     Dosage: UNK
     Dates: start: 1999
  9. ESTRADIOL. [Suspect]
     Active Substance: ESTRADIOL
     Dosage: 0.025 MG/D, UNK
     Route: 062
     Dates: start: 201305, end: 201406
  10. VITAMIN B12 NOS [Concomitant]
     Dosage: UNK
     Dates: start: 1999

REACTIONS (12)
  - Gastrointestinal pain [Recovered/Resolved]
  - Pelvic pain [Recovered/Resolved]
  - Blood cholesterol increased [None]
  - Blood cholesterol decreased [None]
  - Drug ineffective [None]
  - Vaginal inflammation [Recovered/Resolved]
  - Burning sensation [Recovered/Resolved]
  - Vulvovaginal discomfort [Recovered/Resolved]
  - Vulvovaginal swelling [Recovered/Resolved]
  - Abdominal distension [Recovered/Resolved]
  - Urinary tract inflammation [Recovered/Resolved]
  - Fungal infection [None]

NARRATIVE: CASE EVENT DATE: 201309
